FAERS Safety Report 8130141-7 (Version None)
Quarter: 2012Q1

REPORT INFORMATION
  Report Type: 
  Country: None (occurrence: None)
  Receive Date: 20120210
  Receipt Date: 20120209
  Transmission Date: 20120608
  Serious: Yes (Other)
  Sender: FDA-Public Use
  Company Number: US-ABBOTT-11P-163-0842075-00

PATIENT
  Age: 34 Year
  Sex: Female

DRUGS (2)
  1. TRUVADA [Suspect]
     Indication: ANTIRETROVIRAL THERAPY
     Dosage: TABS/CAPS DAILY
     Route: 048
     Dates: start: 20091210, end: 20100304
  2. KALETRA [Suspect]
     Indication: ANTIRETROVIRAL THERAPY
     Dosage: 200-50 MG/DAY
     Route: 048
     Dates: start: 20091210, end: 20100304

REACTIONS (5)
  - PREMATURE DELIVERY [None]
  - STILLBIRTH [None]
  - HYPERTENSION [None]
  - HELLP SYNDROME [None]
  - PRE-ECLAMPSIA [None]
